FAERS Safety Report 4266780-3 (Version None)
Quarter: 2004Q1

REPORT INFORMATION
  Report Type: 
  Country: None (occurrence: None)
  Receive Date: 20040108
  Receipt Date: 20030411
  Transmission Date: 20041129
  Serious: No
  Sender: FDA-Public Use
  Company Number: US-BRISTOL-MYERS SQUIBB COMPANY-12239323

PATIENT
  Age: 55 Year
  Sex: Female

DRUGS (1)
  1. CARDIOLITE [Suspect]

REACTIONS (3)
  - FLUSHING [None]
  - HEADACHE [None]
  - SWELLING FACE [None]
